FAERS Safety Report 24699909 (Version 11)
Quarter: 2025Q4

REPORT INFORMATION
  Report Type: Spontaneous
  Country: CA (occurrence: CA)
  Receive Date: 20241205
  Receipt Date: 20251030
  Transmission Date: 20260117
  Serious: Yes (Hospitalization, Other)
  Sender: TAKEDA
  Company Number: CA-LUNDBECK-DKLU4007531

PATIENT
  Age: 65 Year
  Sex: Female

DRUGS (44)
  1. PANTOPRAZOLE [Suspect]
     Active Substance: PANTOPRAZOLE
     Indication: Gastrooesophageal reflux disease
     Dosage: 40 MILLIGRAM, QD
     Dates: start: 202011
  2. PANTOPRAZOLE [Suspect]
     Active Substance: PANTOPRAZOLE
     Dosage: UNK
  3. PANTOPRAZOLE [Suspect]
     Active Substance: PANTOPRAZOLE
     Dosage: 40 MILLIGRAM, QD
  4. PANTOPRAZOLE [Suspect]
     Active Substance: PANTOPRAZOLE
     Dosage: 40 MILLIGRAM, QD
  5. VENLAFAXINE HYDROCHLORIDE [Suspect]
     Active Substance: VENLAFAXINE HYDROCHLORIDE
     Indication: Depression
     Dosage: 225 MILLIGRAM
  6. VORTIOXETINE [Suspect]
     Active Substance: VORTIOXETINE
     Indication: Depression
     Dosage: 10 MILLIGRAM, QD
  7. VORTIOXETINE [Suspect]
     Active Substance: VORTIOXETINE
     Dosage: UNK
  8. APIXABAN [Suspect]
     Active Substance: APIXABAN
     Indication: Deep vein thrombosis
     Dosage: 5 MILLIGRAM, BID
  9. APIXABAN [Suspect]
     Active Substance: APIXABAN
     Indication: Anticoagulant therapy
  10. APIXABAN [Suspect]
     Active Substance: APIXABAN
     Indication: Depression
  11. BREXPIPRAZOLE [Suspect]
     Active Substance: BREXPIPRAZOLE
     Indication: Depression
     Dosage: UNK
  12. BREXPIPRAZOLE [Suspect]
     Active Substance: BREXPIPRAZOLE
     Indication: Insomnia
     Dosage: 0.25 MILLIGRAM
  13. BUPROPION [Suspect]
     Active Substance: BUPROPION
     Indication: Depression
     Dosage: 300 MILLIGRAM
  14. BUPROPION [Suspect]
     Active Substance: BUPROPION
     Dosage: 450 MILLIGRAM, QD
  15. BUPROPION [Suspect]
     Active Substance: BUPROPION
     Dosage: 400 MILLIGRAM, QD
  16. CANNABIS SATIVA FLOWERING TOP [Suspect]
     Active Substance: CANNABIS SATIVA FLOWERING TOP
     Indication: Insomnia
     Dosage: UNK
  17. CLOMIPRAMINE [Suspect]
     Active Substance: CLOMIPRAMINE
     Indication: Depression
     Dosage: UNK
  18. ESCITALOPRAM OXALATE [Suspect]
     Active Substance: ESCITALOPRAM OXALATE
     Indication: Depression
     Dosage: UNK
  19. FLUOXETINE HYDROCHLORIDE [Suspect]
     Active Substance: FLUOXETINE HYDROCHLORIDE
     Indication: Depression
     Dosage: UNK
  20. FLUVOXAMINE MALEATE [Suspect]
     Active Substance: FLUVOXAMINE MALEATE
     Indication: Depression
     Dosage: UNK
  21. GABAPENTIN [Suspect]
     Active Substance: GABAPENTIN
     Indication: Depression
     Dosage: UNK
  22. LAMOTRIGINE [Suspect]
     Active Substance: LAMOTRIGINE
     Indication: Depression
     Dosage: 300 MILLIGRAM, QD
  23. LEMBOREXANT [Suspect]
     Active Substance: LEMBOREXANT
     Indication: Insomnia
     Dosage: 10 MILLIGRAM
  24. LEMBOREXANT [Suspect]
     Active Substance: LEMBOREXANT
     Indication: Depression
     Dosage: UNK
  25. LEVOMEPROMAZINE [Suspect]
     Active Substance: LEVOMEPROMAZINE
     Indication: Depression
     Dosage: UNK
  26. LORAZEPAM [Suspect]
     Active Substance: LORAZEPAM
     Indication: Depression
     Dosage: UNK
  27. LURASIDONE HYDROCHLORIDE [Suspect]
     Active Substance: LURASIDONE HYDROCHLORIDE
     Indication: Depression
     Dosage: 20 MILLIGRAM, QD
  28. LURASIDONE HYDROCHLORIDE [Suspect]
     Active Substance: LURASIDONE HYDROCHLORIDE
     Dosage: 40 MILLIGRAM, QD
  29. MIRTAZAPINE [Suspect]
     Active Substance: MIRTAZAPINE
     Indication: Depression
     Dosage: 5 MILLIGRAM, BID
  30. MIRTAZAPINE [Suspect]
     Active Substance: MIRTAZAPINE
     Indication: Anticoagulant therapy
  31. OLANZAPINE [Suspect]
     Active Substance: OLANZAPINE
     Indication: Depression
     Dosage: UNK
  32. PAROXETINE HYDROCHLORIDE [Suspect]
     Active Substance: PAROXETINE HYDROCHLORIDE
     Indication: Depression
     Dosage: UNK
  33. PRAMIPEXOLE DIHYDROCHLORIDE [Suspect]
     Active Substance: PRAMIPEXOLE DIHYDROCHLORIDE
     Indication: Depression
     Dosage: 0.25 MILLIGRAM, BID
  34. PRAMIPEXOLE DIHYDROCHLORIDE [Suspect]
     Active Substance: PRAMIPEXOLE DIHYDROCHLORIDE
     Indication: Major depression
     Dosage: 0.5 MILLIGRAM, BID
  35. QUETIAPINE FUMARATE [Suspect]
     Active Substance: QUETIAPINE FUMARATE
     Indication: Depression
     Dosage: UNK
  36. QUETIAPINE FUMARATE [Suspect]
     Active Substance: QUETIAPINE FUMARATE
     Dosage: UNK
  37. RISPERIDONE [Suspect]
     Active Substance: RISPERIDONE
     Indication: Depression
     Dosage: UNK
  38. ZOLPIDEM [Suspect]
     Active Substance: ZOLPIDEM TARTRATE
     Indication: Depression
     Dosage: 10 MILLIGRAM, QD
  39. ZOPICLONE [Suspect]
     Active Substance: ZOPICLONE
     Indication: Depression
     Dosage: 10 MILLIGRAM, QD
  40. LEVOMEPROMAZINE [Suspect]
     Active Substance: LEVOMEPROMAZINE
     Indication: Depression
     Dosage: UNK
  41. MIRTAZAPINE [Suspect]
     Active Substance: MIRTAZAPINE
     Indication: Anticoagulant therapy
     Dosage: 5 MILLIGRAM, BID
  42. MIRTAZAPINE [Suspect]
     Active Substance: MIRTAZAPINE
     Indication: Depression
  43. DAYVIGO [Suspect]
     Active Substance: LEMBOREXANT
     Indication: Depression
     Dosage: 10 MILLIGRAM
  44. LEVOMEPROMAZINE MALEATE [Suspect]
     Active Substance: LEVOMEPROMAZINE MALEATE
     Indication: Depression
     Dosage: UNK

REACTIONS (8)
  - Adverse drug reaction [Recovered/Resolved]
  - Condition aggravated [Recovered/Resolved]
  - Drug ineffective [Recovered/Resolved]
  - Suicidal ideation [Recovered/Resolved]
  - Suicide attempt [Recovered/Resolved]
  - Off label use [Recovered/Resolved]
  - Therapy non-responder [Recovered/Resolved]
  - Underdose [Recovered/Resolved]
